FAERS Safety Report 5145129-8 (Version None)
Quarter: 2006Q4

REPORT INFORMATION
  Report Type: 
  Country: None (occurrence: None)
  Receive Date: 20061107
  Receipt Date: 20060523
  Transmission Date: 20070319
  Serious: Yes (Hospitalization, Other)
  Sender: FDA-Public Use
  Company Number: CA-ELI_LILLY_AND_COMPANY-CA200605005251

PATIENT
  Age: 59 Year
  Sex: Female

DRUGS (2)
  1. FORTEO [Suspect]
     Indication: OSTEOPOROSIS
     Dosage: 20 UG, DAILY (1/D)
     Dates: start: 20050427, end: 20060501
  2. TERAZOSIN HCL [Concomitant]
     Dates: start: 20060330

REACTIONS (3)
  - CLOSTRIDIUM DIFFICILE COLITIS [None]
  - LIMB INJURY [None]
  - MALAISE [None]
